FAERS Safety Report 7013094-4 (Version None)
Quarter: 2010Q3

REPORT INFORMATION
  Report Type: 
  Country: None (occurrence: None)
  Receive Date: 20100924
  Receipt Date: 20100914
  Transmission Date: 20110219
  Serious: Yes (Life-Threatening)
  Sender: FDA-Public Use
  Company Number: FR-PFIZER INC-2010116698

PATIENT
  Age: 74 Year
  Sex: Female

DRUGS (8)
  1. SOLU-MEDROL [Suspect]
     Indication: BREAST CANCER
     Dosage: 60 MG, CYCLIC, 1ST COURSE
     Route: 042
     Dates: start: 20100709, end: 20100716
  2. SOLU-MEDROL [Suspect]
     Dosage: 60 MG, 2ND COURSE
     Dates: start: 20100806, end: 20100806
  3. AVASTIN [Suspect]
     Indication: BREAST CANCER
     Dosage: 10 MG/KG, CYCLIC, 1ST COURSE
     Route: 042
     Dates: start: 20100709
  4. AVASTIN [Suspect]
     Dosage: 10 MG/KG, CYCLIC, 2ND COURSE
     Route: 042
     Dates: start: 20100806, end: 20100806
  5. TAXOL [Suspect]
     Indication: BREAST CANCER
     Dosage: 90 MG/M2, CYCLIC, 1ST COURSE
     Route: 042
     Dates: start: 20100709, end: 20100716
  6. TAXOL [Suspect]
     Dosage: 90 MG/M2, CYCLIC, 2ND COURSE
     Route: 042
     Dates: start: 20100806
  7. CORTANCYL [Suspect]
     Indication: BREAST CANCER
     Dosage: 50 MG, CYCLIC, FIRST COURSE
     Route: 048
     Dates: start: 20100709, end: 20100716
  8. CORTANCYL [Suspect]
     Dosage: 50 MG, CYCLIC, 2ND CYCLE
     Route: 048
     Dates: start: 20100806

REACTIONS (2)
  - APHASIA [None]
  - HEMIPLEGIA [None]
